FAERS Safety Report 24961470 (Version 1)
Quarter: 2025Q1

REPORT INFORMATION
  Report Type: Spontaneous
  Country: US (occurrence: None)
  Receive Date: 20250212
  Receipt Date: 20250212
  Transmission Date: 20250409
  Serious: Yes (unspecified)
  Sender: FDA-CTU
  Company Number: None

PATIENT

DRUGS (2)
  1. ROSUVASTATIN [Suspect]
     Active Substance: ROSUVASTATIN
     Indication: Hyperlipidaemia
     Route: 048
     Dates: start: 20220515, end: 20250205
  2. LEXAPRO [Concomitant]
     Active Substance: ESCITALOPRAM OXALATE

REACTIONS (13)
  - Tendon disorder [None]
  - Arthralgia [None]
  - Therapeutic product ineffective [None]
  - Pain in extremity [None]
  - Soft tissue disorder [None]
  - Rotator cuff syndrome [None]
  - Tendon rupture [None]
  - Osteoarthritis [None]
  - Bursitis [None]
  - Rheumatoid arthritis [None]
  - Arthralgia [None]
  - Rotator cuff syndrome [None]
  - Joint dislocation [None]

NARRATIVE: CASE EVENT DATE: 20240325
